FAERS Safety Report 10008756 (Version 2)
Quarter: 2014Q1

REPORT INFORMATION
  Report Type: Spontaneous
  Country: JP (occurrence: JP)
  Receive Date: 20140313
  Receipt Date: 20140313
  Transmission Date: 20141002
  Serious: Yes (Other)
  Sender: FDA-Public Use
  Company Number: JP-TAKEDA-2014TUS000774

PATIENT
  Sex: 0

DRUGS (11)
  1. FEBURIC [Suspect]
     Indication: HYPERURICAEMIA
     Dosage: 10 MG, QD
     Route: 048
     Dates: start: 20131016, end: 20131217
  2. ATORVASTATIN [Concomitant]
     Indication: HYPERLIPIDAEMIA
     Dosage: 10 MG, QD
     Route: 048
     Dates: start: 20100415
  3. COVERSYL                           /00790702/ [Concomitant]
     Indication: HYPERTENSION
     Dosage: 8 MG, QD
     Route: 048
     Dates: start: 20100406
  4. NORMONAL [Concomitant]
     Indication: HYPERTENSION
     Dosage: 15 MG, QD
     Route: 048
     Dates: start: 20130911
  5. NORMONAL [Concomitant]
     Dosage: 15 UNK, UNK
     Route: 048
     Dates: start: 20131215
  6. MAINTATE [Concomitant]
     Indication: HYPERTENSION
     Dosage: 2.5 MG, QD
     Route: 048
     Dates: start: 20101208
  7. CARTOL [Concomitant]
     Dosage: 0.25 ?G, QD
     Route: 048
     Dates: start: 20120321
  8. JUSO [Concomitant]
     Indication: METABOLIC ACIDOSIS
     Dosage: 2 G, QD
     Route: 048
     Dates: start: 20120408
  9. LASIX                              /00032601/ [Concomitant]
     Indication: RENAL FAILURE CHRONIC
     Dosage: 120 MG, QD
     Route: 048
     Dates: start: 20130731
  10. CALTAN [Concomitant]
     Indication: RENAL FAILURE CHRONIC
     Dosage: 1500 MG, QD
     Route: 048
     Dates: start: 20131016
  11. NOVORAPID [Concomitant]
     Indication: DIABETES MELLITUS
     Dosage: 16 IU, QD
     Route: 058
     Dates: start: 20100421

REACTIONS (3)
  - Lipids abnormal [Recovered/Resolved]
  - Liver function test abnormal [Recovered/Resolved]
  - Platelet count decreased [Recovered/Resolved]
